FAERS Safety Report 6451085-2 (Version None)
Quarter: 2009Q4

REPORT INFORMATION
  Report Type: 
  Country: None (occurrence: None)
  Receive Date: 20091123
  Receipt Date: 20091111
  Transmission Date: 20100525
  Serious: Yes (Other)
  Sender: FDA-Public Use
  Company Number: US-PFIZER INC-2009297005

PATIENT
  Sex: Female
  Weight: 88.904 kg

DRUGS (13)
  1. CHANTIX [Suspect]
     Indication: SMOKING CESSATION THERAPY
     Dosage: FREQUENCY: 2X/DAY,
     Route: 048
     Dates: start: 20090101
  2. ABILIFY [Suspect]
     Indication: BIPOLAR DISORDER
  3. IMITREX [Concomitant]
     Indication: MIGRAINE
     Dosage: FREQUENCY: AS NEEDED,
     Route: 051
  4. IMITREX [Concomitant]
     Dosage: FREQUENCY: AS NEEDED,
     Route: 045
  5. VENTOLIN [Concomitant]
     Indication: BRONCHITIS
     Dosage: FREQUENCY: AS NEEDED,
     Route: 045
  6. ULTRAM [Concomitant]
     Indication: PAIN
     Dosage: FREQUENCY: 3X/DAY,
     Route: 048
     Dates: start: 20060101
  7. ULTRAM [Concomitant]
     Indication: ABDOMINAL PAIN UPPER
  8. ULTRAM [Concomitant]
     Indication: ARTHRITIS
  9. VICODIN [Concomitant]
     Indication: DYSMENORRHOEA
     Dosage: FREQUENCY: EVERY 4-6 HOURS DURING MENSTRUAL CYCLE.,
     Route: 048
  10. IRON [Concomitant]
     Route: 051
  11. CALAN [Concomitant]
     Route: 048
     Dates: start: 20060101
  12. TOPAMAX [Concomitant]
     Indication: MIGRAINE
     Route: 048
  13. VITAMIN B COMPLEX CAP [Concomitant]
     Dosage: FREQUENCY: ONCE A WEEK,

REACTIONS (5)
  - CARDIAC INFECTION [None]
  - DIZZINESS [None]
  - LOWER RESPIRATORY TRACT INFECTION [None]
  - PULMONARY THROMBOSIS [None]
  - VOMITING [None]
